FAERS Safety Report 9573378 (Version 1)
Quarter: 2013Q3

REPORT INFORMATION
  Report Type: Spontaneous
  Country: FR (occurrence: None)
  Receive Date: 20130927
  Receipt Date: 20130927
  Transmission Date: 20140515
  Serious: Yes (Other)
  Sender: FDA-Public Use
  Company Number: BAP-FR-13-SPO-0051

PATIENT
  Age: 81 Year
  Sex: Female

DRUGS (12)
  1. LORAMYC [Suspect]
     Indication: PRODUCT USED FOR UNKNOWN INDICATION
     Dosage: 50 MILLIGRAM, 1 IN 1 DAYS, BUCCAL
     Route: 002
     Dates: start: 20130723, end: 20130802
  2. INEXIUM [Suspect]
     Indication: PRODUCT USED FOR UNKNOWN INDICATION
     Dosage: 40 MILLIGRAM, 1 IN 1 DAYS, ORAL
     Route: 048
     Dates: start: 20130608
  3. HEMIGOXINE [Suspect]
     Indication: PRODUCT USED FOR UNKNOWN INDICATION
     Dosage: 0.125 MILLIGRAM, 1 IN 1 DAYS, ORAL
     Route: 048
     Dates: start: 20130608
  4. DOLIPRANE [Suspect]
     Indication: PRODUCT USED FOR UNKNOWN INDICATION
     Dosage: 3 GRAM, 3 IN 1 DAYS, ORAL
     Route: 048
     Dates: start: 20130608
  5. LASILIX [Suspect]
     Indication: PRODUCT USED FOR UNKNOWN INDICATION
     Dosage: 20 MILLIGRAM, 1 IN 1 DAYS, ORAL
     Route: 048
     Dates: start: 20130608, end: 20130802
  6. XARELTO [Suspect]
     Indication: PRODUCT USED FOR UNKNOWN INDICATION
     Dosage: 20 MILLIGRAM, 1 IN 1 DAYS, ORAL
     Route: 048
     Dates: start: 20130608
  7. MOVICOL [Suspect]
     Indication: PRODUCT USED FOR UNKNOWN INDICATION
     Dosage: 2 DOSAGE FORMS, 2 IN 1 DAYS, ORAL
     Route: 048
     Dates: start: 20130608, end: 20130809
  8. ZAMUDOL [Suspect]
     Indication: PRODUCT USED FOR UNKNOWN INDICATION
     Dosage: 100 MILLIGRAM, 2 IN 1 DAYS, ORAL
     Route: 048
     Dates: start: 20130729, end: 20130802
  9. KARDEGIC [Concomitant]
  10. LOXEN [Concomitant]
  11. BISOPROLOL (BISOPROLOL) [Suspect]
  12. VALSARTAN [Concomitant]

REACTIONS (1)
  - Persecutory delusion [None]
